FAERS Safety Report 20549714 (Version 7)
Quarter: 2022Q3

REPORT INFORMATION
  Report Type: Report from Study
  Country: KR (occurrence: KR)
  Receive Date: 20220304
  Receipt Date: 20220927
  Transmission Date: 20221027
  Serious: Yes (Hospitalization)
  Sender: FDA-Public Use
  Company Number: KR-ABBVIE-21K-090-3958578-00

PATIENT
  Age: 45 Year
  Sex: Female
  Weight: 59 kg

DRUGS (23)
  1. SKYRIZI [Suspect]
     Active Substance: RISANKIZUMAB-RZAA
     Indication: Psoriasis
     Route: 058
     Dates: start: 20210210, end: 20210210
  2. SKYRIZI [Suspect]
     Active Substance: RISANKIZUMAB-RZAA
     Route: 058
     Dates: start: 20210318, end: 20210318
  3. SKYRIZI [Suspect]
     Active Substance: RISANKIZUMAB-RZAA
     Route: 058
     Dates: start: 20210610, end: 20210610
  4. SKYRIZI [Suspect]
     Active Substance: RISANKIZUMAB-RZAA
     Route: 058
     Dates: start: 20210909, end: 20210909
  5. SKYRIZI [Suspect]
     Active Substance: RISANKIZUMAB-RZAA
     Route: 058
     Dates: start: 20211202, end: 20211202
  6. SKYRIZI [Suspect]
     Active Substance: RISANKIZUMAB-RZAA
     Dosage: ONCE
     Route: 058
     Dates: start: 20220303, end: 20220303
  7. ENSTILAR [Concomitant]
     Active Substance: BETAMETHASONE DIPROPIONATE\CALCIPOTRIENE HYDRATE
     Indication: Psoriasis
     Dosage: PRN, FOAM
     Route: 061
     Dates: start: 20200615, end: 20210320
  8. DETHASONE [Concomitant]
     Indication: Psoriasis
     Dosage: OINT 0 .25 PERCENT, 30G, PRN
     Route: 061
     Dates: start: 2018
  9. OMEX [Concomitant]
     Indication: Psoriasis
     Dosage: CREAM 20G, PRN
     Route: 061
     Dates: start: 20201208, end: 20210320
  10. ENSTILUM [Concomitant]
     Indication: Product used for unknown indication
     Dosage: UNIT DOSE : UNKNOWN (FOAM)
     Route: 061
     Dates: start: 20200615, end: 20210320
  11. BETAMETHASONE DIPROPIONATE\CALCIPOTRIENE HYDRATE [Concomitant]
     Active Substance: BETAMETHASONE DIPROPIONATE\CALCIPOTRIENE HYDRATE
     Indication: Psoriasis
     Dosage: PRN, GEL
     Dates: start: 20201103, end: 20210320
  12. VITAMIN C [Concomitant]
     Active Substance: ASCORBIC ACID
     Indication: Nutritional supplementation
     Route: 048
     Dates: start: 20210129, end: 20211130
  13. XYZAL [Concomitant]
     Active Substance: LEVOCETIRIZINE DIHYDROCHLORIDE
     Indication: Psoriasis
     Dosage: TAB 5MG, PRN
     Route: 048
     Dates: start: 20201103, end: 20210320
  14. ITOMED [Concomitant]
     Indication: Gastrointestinal disorder prophylaxis
     Route: 048
     Dates: start: 20210427, end: 20210503
  15. REBAT [Concomitant]
     Indication: Gastrointestinal disorder prophylaxis
     Route: 048
     Dates: start: 20210427, end: 20210503
  16. CEFAZOLINE YUHAN [Concomitant]
     Indication: Product used for unknown indication
     Route: 042
     Dates: start: 20220225, end: 20220225
  17. LOXOPRIN [Concomitant]
     Indication: Pain management
     Route: 048
     Dates: start: 20220225
  18. OROCIN [Concomitant]
     Indication: Infection prophylaxis
     Route: 048
     Dates: start: 20220225
  19. HUMOSA [Concomitant]
     Indication: Infection prophylaxis
     Route: 048
     Dates: start: 20220225
  20. TOZINAMERAN [Concomitant]
     Active Substance: TOZINAMERAN
     Indication: Product used for unknown indication
     Route: 030
     Dates: start: 20210918, end: 20210918
  21. TOZINAMERAN [Concomitant]
     Active Substance: TOZINAMERAN
     Indication: Product used for unknown indication
     Route: 030
     Dates: start: 20211026, end: 20211026
  22. METHOTREXATE [Concomitant]
     Active Substance: METHOTREXATE
     Indication: Psoriasis
     Dates: start: 20201103, end: 20210209
  23. CYCLOSPORINE [Concomitant]
     Active Substance: CYCLOSPORINE
     Indication: Psoriasis
     Dates: start: 20200616, end: 20201102

REACTIONS (3)
  - Uterine leiomyoma [Recovered/Resolved]
  - Ligament sprain [Recovered/Resolved]
  - Dermatitis contact [Recovered/Resolved]

NARRATIVE: CASE EVENT DATE: 20210101
